FAERS Safety Report 10758243 (Version 1)
Quarter: 2015Q1

REPORT INFORMATION
  Report Type: Spontaneous
  Country: None (occurrence: None)
  Receive Date: 20150202
  Receipt Date: 20150202
  Transmission Date: 20150721
  Serious: Yes (Life-Threatening)
  Sender: FDA-Public Use
  Company Number: None

PATIENT
  Age: 24 Year
  Sex: Female
  Weight: 60 kg

DRUGS (1)
  1. POSTINOR [Suspect]
     Active Substance: LEVONORGESTREL
     Indication: CONTRACEPTION
     Dosage: PRN/AS NEEDED ORAL
     Route: 048

REACTIONS (4)
  - Galactorrhoea [None]
  - Nausea [None]
  - Breast tenderness [None]
  - Breast discomfort [None]
